FAERS Safety Report 15172514 (Version 1)
Quarter: 2018Q3

REPORT INFORMATION
  Report Type: Spontaneous
  Country: US (occurrence: US)
  Receive Date: 20180720
  Receipt Date: 20180720
  Transmission Date: 20181010
  Serious: Yes (Life-Threatening, Other)
  Sender: FDA-Public Use
  Company Number: US-BAYER-2018-133152

PATIENT
  Age: 28 Year
  Sex: Female

DRUGS (2)
  1. ACETYLSALICYLIC ACID({=100 MG) [Suspect]
     Active Substance: ASPIRIN
  2. PARACETAMOL [Suspect]
     Active Substance: ACETAMINOPHEN

REACTIONS (6)
  - Intentional overdose [None]
  - Suicide attempt [None]
  - Tachycardia foetal [None]
  - Maternal exposure during pregnancy [None]
  - Foetal heart rate deceleration abnormality [None]
  - Hypoacusis [None]
